FAERS Safety Report 8842377 (Version 2)
Quarter: 2012Q4

REPORT INFORMATION
  Report Type: Report from Study
  Country: US (occurrence: US)
  Receive Date: 20121016
  Receipt Date: 20121023
  Transmission Date: 20130627
  Serious: Yes (Hospitalization)
  Sender: FDA-Public Use
  Company Number: US-ROCHE-1122466

PATIENT
  Age: 59 Year
  Sex: Male
  Weight: 114 kg

DRUGS (7)
  1. BEVACIZUMAB [Suspect]
     Indication: COLORECTAL CANCER METASTATIC
     Route: 042
     Dates: start: 20120815, end: 20120815
  2. OXALIPLATIN [Suspect]
     Indication: COLORECTAL CANCER METASTATIC
     Route: 042
     Dates: start: 20120815, end: 20120815
  3. FLUOROURACIL [Suspect]
     Indication: COLORECTAL CANCER METASTATIC
     Route: 040
     Dates: start: 20120815, end: 20120815
  4. FLUOROURACIL [Suspect]
     Route: 042
     Dates: start: 20120815
  5. LEUCOVORIN CALCIUM [Suspect]
     Indication: COLORECTAL CANCER METASTATIC
     Route: 042
     Dates: start: 20120815, end: 20120815
  6. LEUCOVORIN CALCIUM [Suspect]
     Route: 042
     Dates: start: 20120815, end: 20120816
  7. PROCHLORPERAZINE [Concomitant]
     Route: 065

REACTIONS (2)
  - Pyrexia [Recovered/Resolved]
  - Tachycardia [Recovered/Resolved]
